FAERS Safety Report 4622712-7 (Version None)
Quarter: 2005Q1

REPORT INFORMATION
  Report Type: 
  Country: None (occurrence: None)
  Receive Date: 20050328
  Receipt Date: 20050328
  Transmission Date: 20050727
  Serious: Yes (Hospitalization)
  Sender: FDA-Public Use
  Company Number: None

PATIENT
  Sex: Male
  Weight: 86.1834 kg

DRUGS (8)
  1. ALIMTA [Suspect]
     Indication: NON-SMALL CELL LUNG CANCER
     Dosage: 1000 MG IV Q 21 DAYS
     Route: 042
  2. ALIMTA [Suspect]
     Indication: SMALL CELL LUNG CANCER STAGE UNSPECIFIED
     Dosage: 1000 MG IV Q 21 DAYS
     Route: 042
  3. PLAVIX [Concomitant]
  4. PROTONIC [Concomitant]
  5. TOPROL-XL [Concomitant]
  6. B-12 [Concomitant]
  7. FOLIC ACID [Concomitant]
  8. MULTI. VIT. [Concomitant]

REACTIONS (3)
  - ATRIAL FIBRILLATION [None]
  - EJECTION FRACTION DECREASED [None]
  - MYOCARDIAL INFARCTION [None]
